FAERS Safety Report 14734465 (Version 2)
Quarter: 2018Q2

REPORT INFORMATION
  Report Type: Spontaneous
  Country: US (occurrence: US)
  Receive Date: 20180409
  Receipt Date: 20180430
  Transmission Date: 20180711
  Serious: Yes (Death)
  Sender: FDA-Public Use
  Company Number: US-SA-2018SA101223

PATIENT
  Age: 62 Year
  Sex: Female
  Weight: 53.97 kg

DRUGS (3)
  1. AUBAGIO [Suspect]
     Active Substance: TERIFLUNOMIDE
     Indication: RELAPSING-REMITTING MULTIPLE SCLEROSIS
     Route: 048
     Dates: start: 201702, end: 201803
  2. MILK THISTLE [Concomitant]
     Active Substance: DIETARY SUPPLEMENT\HERBALS\MILK THISTLE
     Indication: NUTRITIONAL SUPPLEMENTATION
     Route: 065
     Dates: start: 2017, end: 201803
  3. ERGOCALCIFEROL. [Concomitant]
     Active Substance: ERGOCALCIFEROL
     Indication: VITAMIN D DEFICIENCY
     Dosage: DOSE: 50000
     Route: 065
     Dates: start: 20130712, end: 201803

REACTIONS (7)
  - Nodule [Fatal]
  - Lung adenocarcinoma stage IV [Fatal]
  - Pneumonia [Fatal]
  - Cough [Fatal]
  - Pneumothorax [Fatal]
  - Fatigue [Fatal]
  - Dyspnoea [Fatal]

NARRATIVE: CASE EVENT DATE: 20180301
